FAERS Safety Report 18453285 (Version 1)
Quarter: 2020Q4

REPORT INFORMATION
  Report Type: Spontaneous
  Country: FR (occurrence: FR)
  Receive Date: 20201102
  Receipt Date: 20201102
  Transmission Date: 20210114
  Serious: Yes (Other)
  Sender: FDA-Public Use
  Company Number: FR-BAYER-2020-230902

PATIENT
  Age: 65 Year

DRUGS (4)
  1. VALACYCLOVIR [Suspect]
     Active Substance: VALACYCLOVIR HYDROCHLORIDE
  2. BORTEZOMIB. [Suspect]
     Active Substance: BORTEZOMIB
  3. CEFPODOXIME [Suspect]
     Active Substance: CEFPODOXIME
  4. CIPROFLOXACIN. [Suspect]
     Active Substance: CIPROFLOXACIN

REACTIONS (1)
  - Thrombotic microangiopathy [Recovering/Resolving]
